FAERS Safety Report 6458627-1 (Version None)
Quarter: 2009Q4

REPORT INFORMATION
  Report Type: 
  Country: None (occurrence: None)
  Receive Date: 20091126
  Receipt Date: 20091116
  Transmission Date: 20100525
  Serious: No
  Sender: FDA-Public Use
  Company Number: US-JNJFOC-20091105184

PATIENT
  Sex: Male
  Weight: 104.33 kg

DRUGS (1)
  1. FENTANYL CITRATE [Suspect]
     Indication: ABDOMINAL PAIN
     Dosage: 2 75 UG/HR PATCHES
     Route: 062

REACTIONS (4)
  - ABDOMINAL PAIN [None]
  - DRUG INEFFECTIVE [None]
  - HYPERHIDROSIS [None]
  - PRODUCT ADHESION ISSUE [None]
